FAERS Safety Report 8718024 (Version 2)
Quarter: 2012Q4

REPORT INFORMATION
  Report Type: 
  Country: BR (occurrence: BR)
  Receive Date: 20120810
  Receipt Date: 20121213
  Transmission Date: 20130627
  Serious: Yes (Disabling, Other)
  Sender: FDA-Public Use
  Company Number: BR-ASTRAZENECA-2012SE55252

PATIENT
  Age: 921 Month
  Sex: Male
  Weight: 90 kg

DRUGS (5)
  1. CRESTOR [Suspect]
     Indication: BLOOD CHOLESTEROL INCREASED
     Route: 048
     Dates: start: 200905, end: 201207
  2. CRESTOR [Suspect]
     Indication: BLOOD CHOLESTEROL INCREASED
     Route: 048
  3. COZAAR [Concomitant]
     Dosage: BID
     Route: 048
  4. ZYLORIC [Concomitant]
     Dosage: OD
     Route: 048
  5. CLINFAR [Concomitant]
     Dosage: BID
     Route: 048

REACTIONS (2)
  - Cerebrovascular accident [Recovered/Resolved]
  - Investigation abnormal [Unknown]
